FAERS Safety Report 5040174-5 (Version None)
Quarter: 2006Q2

REPORT INFORMATION
  Report Type: 
  Country: None (occurrence: None)
  Receive Date: 20060630
  Receipt Date: 20060622
  Transmission Date: 20061013
  Serious: Yes (Hospitalization)
  Sender: FDA-Public Use
  Company Number: ES-AMGEN-UK184030

PATIENT
  Age: 51 Year
  Sex: Male

DRUGS (3)
  1. NEUPOGEN [Suspect]
     Indication: AGRANULOCYTOSIS
     Route: 042
     Dates: start: 20060428, end: 20060501
  2. KALETRA [Concomitant]
     Route: 048
     Dates: start: 20041013, end: 20060428
  3. TENOFOVIR DISOPROXIL FUMARAT [Concomitant]
     Route: 048
     Dates: start: 20050830, end: 20060428

REACTIONS (1)
  - VASCULITIS [None]
